FAERS Safety Report 15180945 (Version 3)
Quarter: 2018Q3

REPORT INFORMATION
  Report Type: Spontaneous
  Country: JP (occurrence: JP)
  Receive Date: 20180723
  Receipt Date: 20180814
  Transmission Date: 20181010
  Serious: Yes (Other)
  Sender: FDA-Public Use
  Company Number: JP-ASTRAZENECA-2018SE93767

PATIENT
  Age: 42 Year
  Sex: Female

DRUGS (24)
  1. FLUVOXAMINE MALEATE. [Concomitant]
     Active Substance: FLUVOXAMINE MALEATE
     Route: 048
  2. MILNACIPRAN HYDROCHLORIDE. [Concomitant]
     Active Substance: MILNACIPRAN HYDROCHLORIDE
     Route: 048
  3. ROHYPNOL [Concomitant]
     Active Substance: FLUNITRAZEPAM
     Route: 048
  4. QUETIAPINE. [Suspect]
     Active Substance: QUETIAPINE
     Indication: PRODUCT USED FOR UNKNOWN INDICATION
     Dosage: GENERIC
     Route: 048
  5. SUGLAT [Suspect]
     Active Substance: IPRAGLIFLOZIN L-PROLINE
     Indication: DIABETES MELLITUS
     Route: 048
  6. QUAZEPAM. [Concomitant]
     Active Substance: QUAZEPAM
     Route: 048
  7. REBAMIPIDE [Concomitant]
     Active Substance: REBAMIPIDE
     Route: 048
  8. OLMESARTAN [Concomitant]
     Active Substance: OLMESARTAN
  9. THEOLONG [Concomitant]
     Active Substance: THEOPHYLLINE ANHYDROUS
  10. SEROQUEL [Suspect]
     Active Substance: QUETIAPINE FUMARATE
     Indication: PRODUCT USED FOR UNKNOWN INDICATION
     Route: 048
  11. METFORMIN HYDROCHLORIDE. [Concomitant]
     Active Substance: METFORMIN HYDROCHLORIDE
  12. DILTIAZEM HYDROCHLORIDE R [Concomitant]
     Active Substance: DILTIAZEM HYDROCHLORIDE
  13. ARIPIPRAZOLE. [Concomitant]
     Active Substance: ARIPIPRAZOLE
     Route: 048
  14. PIOGLITAZONE. [Concomitant]
     Active Substance: PIOGLITAZONE
  15. REZALTAS [Concomitant]
     Active Substance: AZELNIDIPINE\OLMESARTAN MEDOXOMIL
  16. TRESIBA [Concomitant]
     Active Substance: INSULIN DEGLUDEC
     Indication: DIABETES MELLITUS
  17. BISOPROLOL [Concomitant]
     Active Substance: BISOPROLOL
     Route: 048
  18. AMLODIPINE [Concomitant]
     Active Substance: AMLODIPINE BESYLATE
  19. MYSLEE [Suspect]
     Active Substance: ZOLPIDEM TARTRATE
     Indication: PRODUCT USED FOR UNKNOWN INDICATION
     Route: 048
  20. TRULICITY [Concomitant]
     Active Substance: DULAGLUTIDE
  21. SELENICA R [Concomitant]
     Active Substance: VALPROATE SODIUM
     Route: 048
  22. METHYCOBAL [Concomitant]
     Active Substance: METHYLCOBALAMIN
     Route: 048
  23. TAKECAB [Concomitant]
     Active Substance: VONOPRAZAN FUMURATE
  24. TRESIBA [Concomitant]
     Active Substance: INSULIN DEGLUDEC
     Indication: DIABETES MELLITUS

REACTIONS (2)
  - Off label use [Unknown]
  - Diabetes mellitus [Unknown]
